FAERS Safety Report 8787341 (Version 2)
Quarter: 2015Q2

REPORT INFORMATION
  Report Type: Report from Study
  Country: US (occurrence: US)
  Receive Date: 20120914
  Receipt Date: 20150626
  Transmission Date: 20150821
  Serious: Yes (Death)
  Sender: FDA-Public Use
  Company Number: US-ROCHE-1125847

PATIENT
  Sex: Male

DRUGS (5)
  1. CAPECITABINE. [Suspect]
     Active Substance: CAPECITABINE
     Indication: PRODUCT USED FOR UNKNOWN INDICATION
     Route: 065
  2. AVASTIN [Suspect]
     Active Substance: BEVACIZUMAB
     Indication: PANCREATIC CARCINOMA
     Route: 042
  3. ERLOTINIB [Suspect]
     Active Substance: ERLOTINIB
     Indication: PRODUCT USED FOR UNKNOWN INDICATION
     Route: 065
  4. 5-FLUOROURACIL [Concomitant]
     Active Substance: FLUOROURACIL
     Route: 065
  5. ARANESP [Concomitant]
     Active Substance: DARBEPOETIN ALFA
     Route: 065

REACTIONS (23)
  - Death [Fatal]
  - Fatigue [Unknown]
  - Metastases to bone [Unknown]
  - Disease progression [Unknown]
  - Off label use [Unknown]
  - Abdominal discomfort [Unknown]
  - Metastases to liver [Unknown]
  - Pain [Unknown]
  - Diarrhoea [Unknown]
  - Oedema [Unknown]
  - Dyspnoea [Unknown]
  - Ascites [Unknown]
  - Rash [Unknown]
  - Decreased appetite [Unknown]
  - Pleural effusion [Unknown]
  - Waist circumference increased [Unknown]
  - Inguinal hernia [Unknown]
  - Pulmonary mass [Unknown]
  - Oral pain [Unknown]
  - Weight decreased [Unknown]
  - Infected dermal cyst [Unknown]
  - Blood creatinine increased [Unknown]
  - Portal vein thrombosis [Unknown]
